FAERS Safety Report 4702728-2 (Version None)
Quarter: 2005Q2

REPORT INFORMATION
  Report Type: 
  Country: None (occurrence: None)
  Receive Date: 20050628
  Receipt Date: 20050628
  Transmission Date: 20051028
  Serious: Yes (Other)
  Sender: FDA-Public Use
  Company Number: None

PATIENT

DRUGS (2)
  1. REMERON [Suspect]
     Indication: MAJOR DEPRESSION
     Dosage: 7.5 MG PO QHS
     Route: 048
     Dates: start: 20050505
  2. GEODON [Concomitant]

REACTIONS (1)
  - GENERALISED OEDEMA [None]
